FAERS Safety Report 4990937-7 (Version None)
Quarter: 2006Q2

REPORT INFORMATION
  Report Type: 
  Country: None (occurrence: None)
  Receive Date: 20060428
  Receipt Date: 20060413
  Transmission Date: 20061013
  Serious: Yes (Other)
  Sender: FDA-Public Use
  Company Number: GBR-2006-0002223

PATIENT
  Sex: Female

DRUGS (3)
  1. MORPHINE SULFATE [Suspect]
     Indication: PAIN
     Dosage: 60 MG, BID, ORAL
     Route: 048
     Dates: end: 20060406
  2. TRAMADOL HCL [Concomitant]
  3. PARACETAMOL [Concomitant]

REACTIONS (2)
  - CONVULSION [None]
  - HYPONATRAEMIC SYNDROME [None]
